FAERS Safety Report 8795449 (Version 2)
Quarter: 2013Q1

REPORT INFORMATION
  Report Type: Spontaneous
  Country: FR (occurrence: FR)
  Receive Date: 20120917
  Receipt Date: 20130214
  Transmission Date: 20140127
  Serious: Yes (Hospitalization)
  Sender: FDA-Public Use
  Company Number: FR-B.I. PHARMACEUTICALS,INC./RIDGEFIELD-2012-FF-01209FF

PATIENT
  Age: 3 Year
  Sex: Male
  Weight: 11 kg

DRUGS (7)
  1. CATAPRESSAN [Suspect]
     Dosage: 0.075 MG
     Route: 048
     Dates: start: 20120726
  2. RIVOTRIL [Suspect]
     Dosage: 2.5MG/ML 4 DROPS ONCE DAILY
     Route: 048
     Dates: start: 20120726
  3. SOLUPRED [Concomitant]
     Dosage: 12.5 MG
     Route: 048
  4. BACTRIM [Concomitant]
     Route: 048
  5. INEXIUM [Concomitant]
     Dosage: 20 MG
     Route: 048
  6. FORTUM [Concomitant]
     Route: 048
     Dates: start: 20120712
  7. CIFLOX [Concomitant]
     Route: 048
     Dates: start: 20120712

REACTIONS (2)
  - Somnolence [Recovered/Resolved]
  - Hypotension [Recovered/Resolved]
